FAERS Safety Report 20826772 (Version 2)
Quarter: 2022Q2

REPORT INFORMATION
  Report Type: Spontaneous
  Country: US (occurrence: US)
  Receive Date: 20220513
  Receipt Date: 20220622
  Transmission Date: 20220720
  Serious: No
  Sender: FDA-Public Use
  Company Number: US-BRISTOL-MYERS SQUIBB COMPANY-2022-023368

PATIENT
  Age: 65 Year
  Sex: Female

DRUGS (2)
  1. POMALYST [Suspect]
     Active Substance: POMALIDOMIDE
     Indication: Product used for unknown indication
     Route: 048
     Dates: start: 202111
  2. POMALYST [Suspect]
     Active Substance: POMALIDOMIDE
     Indication: Plasma cell myeloma

REACTIONS (6)
  - Oedema peripheral [Unknown]
  - Contusion [Unknown]
  - Wound [Unknown]
  - Localised infection [Unknown]
  - Malaise [Unknown]
  - Bronchitis [Unknown]

NARRATIVE: CASE EVENT DATE: 20220324
